FAERS Safety Report 15862969 (Version 2)
Quarter: 2019Q1

REPORT INFORMATION
  Report Type: Report from Study
  Country: PE (occurrence: PE)
  Receive Date: 20190124
  Receipt Date: 20190131
  Transmission Date: 20190417
  Serious: Yes (Other)
  Sender: FDA-Public Use
  Company Number: PE-INCYTE CORPORATION-2019IN000432

PATIENT

DRUGS (1)
  1. JAKAVI [Suspect]
     Active Substance: RUXOLITINIB
     Indication: PRODUCT USED FOR UNKNOWN INDICATION
     Dosage: 30 MG, BID
     Route: 048
     Dates: start: 20160815

REACTIONS (4)
  - Myelofibrosis [Not Recovered/Not Resolved]
  - Weight decreased [Recovering/Resolving]
  - Cellulitis [Recovering/Resolving]
  - Arthropod bite [Recovering/Resolving]

NARRATIVE: CASE EVENT DATE: 201808
